FAERS Safety Report 14221240 (Version 2)
Quarter: 2019Q2

REPORT INFORMATION
  Report Type: Spontaneous
  Country: US (occurrence: US)
  Receive Date: 20171124
  Receipt Date: 20190603
  Transmission Date: 20190711
  Serious: No
  Sender: FDA-Public Use
  Company Number: US-PFIZER INC-2017505613

PATIENT
  Age: 61 Year
  Sex: Female
  Weight: 83 kg

DRUGS (7)
  1. LYRICA [Concomitant]
     Active Substance: PREGABALIN
     Indication: LUMBAR RADICULOPATHY
  2. METFORMIN [Concomitant]
     Active Substance: METFORMIN HYDROCHLORIDE
     Indication: DIABETES MELLITUS
     Dosage: 2000 MG, 1X/DAY
  3. AMLODIPINE [Concomitant]
     Active Substance: AMLODIPINE BESYLATE
     Indication: HYPERTENSION
     Dosage: 10 MG, UNK
  4. CELEBREX [Suspect]
     Active Substance: CELECOXIB
     Indication: SPINAL STENOSIS
     Dosage: 200 MG, 1X/DAY
  5. TELMISARTAN. [Concomitant]
     Active Substance: TELMISARTAN
     Dosage: 80 MG, 1X/DAY
  6. LYRICA [Concomitant]
     Active Substance: PREGABALIN
     Indication: SPINAL STENOSIS
     Dosage: 75 MG, 2X/DAY (TAKE 1 CAPSULE TWICE DAILY)
     Route: 048
  7. LYRICA [Concomitant]
     Active Substance: PREGABALIN
     Indication: LUMBAR SPINAL STENOSIS

REACTIONS (3)
  - Swelling [Recovering/Resolving]
  - Product use in unapproved indication [Unknown]
  - Off label use [Unknown]
